FAERS Safety Report 8447058-0 (Version None)
Quarter: 2012Q2

REPORT INFORMATION
  Report Type: 
  Country: None (occurrence: None)
  Receive Date: 20120619
  Receipt Date: 20120611
  Transmission Date: 20120825
  Serious: Yes (Hospitalization)
  Sender: FDA-Public Use
  Company Number: PHHY2012FR050615

PATIENT
  Sex: Female

DRUGS (10)
  1. PYOSTACINE [Suspect]
     Indication: SKIN LESION
     Dosage: UNK UKN, UNK
     Route: 065
     Dates: start: 20120416
  2. TRUVADA [Concomitant]
     Dosage: AT ONE TABLET DAILY
     Route: 065
  3. REYATAZ [Concomitant]
     Dosage: TWO TABLETS DAILY
     Route: 065
  4. VACCINES [Concomitant]
     Dosage: UNK UKN, UNK
     Route: 065
  5. LAMISIL [Suspect]
     Dosage: UNK
  6. AMOXICILLIN [Suspect]
     Indication: SKIN LESION
     Dosage: UNK UKN, UNK
     Route: 065
     Dates: start: 20120403, end: 20120416
  7. CONTRACEPTIVES [Concomitant]
     Dosage: UNK UKN, UNK
     Route: 065
  8. TRUVADA [Concomitant]
     Indication: HIV INFECTION
     Dosage: UNK UKN, UNK
     Route: 065
  9. LAMISIL [Suspect]
     Indication: SKIN LESION
     Dosage: UNK UKN, UNK
     Route: 065
     Dates: start: 20120416
  10. REYATAZ [Concomitant]
     Indication: HIV INFECTION
     Dosage: UNK UKN, UNK
     Route: 065

REACTIONS (11)
  - MALAISE [None]
  - ALPHA GLOBULIN INCREASED [None]
  - ACUTE GENERALISED EXANTHEMATOUS PUSTULOSIS [None]
  - DERMATITIS EXFOLIATIVE [None]
  - PRURITUS [None]
  - PRURIGO [None]
  - RASH PUSTULAR [None]
  - DRUG ERUPTION [None]
  - RASH [None]
  - LYMPHADENITIS [None]
  - PYREXIA [None]
